FAERS Safety Report 14027203 (Version 1)
Quarter: 2017Q3

REPORT INFORMATION
  Report Type: Spontaneous
  Country: US (occurrence: US)
  Receive Date: 20170929
  Receipt Date: 20170929
  Transmission Date: 20171128
  Serious: No
  Sender: FDA-Public Use
  Company Number: US-NOVEN PHARMACEUTICALS, INC.-US2017000557

PATIENT

DRUGS (7)
  1. COMBIPATCH [Suspect]
     Active Substance: ESTRADIOL\NORETHINDRONE ACETATE
     Indication: HORMONE REPLACEMENT THERAPY
     Dosage: 50/250 MG, 2/WK
     Route: 062
     Dates: start: 2016
  2. BIOTIN [Concomitant]
     Active Substance: BIOTIN
     Indication: NAIL GROWTH ABNORMAL
  3. CALCIUM [Concomitant]
     Active Substance: CALCIUM
  4. BABY ASPIRIN [Concomitant]
     Active Substance: ASPIRIN
  5. ESTRA-D [Concomitant]
     Dosage: 1000 UNITS, UNK
  6. MEDROXYPROGESTERONE [Concomitant]
     Active Substance: MEDROXYPROGESTERONE
     Dosage: 2.5 MG, UNK
  7. VITAMIN D3 [Concomitant]
     Active Substance: CHOLECALCIFEROL
     Indication: SINUSITIS

REACTIONS (3)
  - Drug dose omission [Recovered/Resolved]
  - Condition aggravated [Not Recovered/Not Resolved]
  - Metrorrhagia [Not Recovered/Not Resolved]

NARRATIVE: CASE EVENT DATE: 2017
